FAERS Safety Report 6744922-5 (Version None)
Quarter: 2010Q2

REPORT INFORMATION
  Report Type: 
  Country: None (occurrence: None)
  Receive Date: 20100527
  Receipt Date: 20100518
  Transmission Date: 20101027
  Serious: Yes (Congenital Anomaly)
  Sender: FDA-Public Use
  Company Number: GB-B.I. PHARMACEUTICALS,INC./RIDGEFIELD-2010-BP-05633BP

PATIENT
  Sex: Female
  Weight: 3.29 kg

DRUGS (2)
  1. VIRAMUNE [Suspect]
     Indication: HIV INFECTION
     Route: 064
  2. EPZICOM [Concomitant]
     Indication: HIV INFECTION
     Route: 064

REACTIONS (1)
  - LARYNGEAL DISORDER [None]
